FAERS Safety Report 8963967 (Version 2)
Quarter: 2013Q2

REPORT INFORMATION
  Report Type: Spontaneous
  Country: US (occurrence: US)
  Receive Date: 20121214
  Receipt Date: 20130401
  Transmission Date: 20140414
  Serious: Yes (Other)
  Sender: FDA-Public Use
  Company Number: US-BAYER-2012-129872

PATIENT
  Age: 35 Year
  Sex: Female
  Weight: 73.47 kg

DRUGS (6)
  1. YASMIN [Suspect]
     Dosage: UNK
  2. YAZ [Suspect]
     Dosage: UNK
  3. OCELLA [Suspect]
     Dosage: UNK
  4. ALI [Concomitant]
     Dosage: UNK
     Dates: start: 20090911
  5. METRONIDAZOLE [Concomitant]
     Dosage: UNK
     Dates: start: 20090724
  6. METRONIDAZOLE [Concomitant]
     Dosage: 500 MG, UNK
     Dates: start: 20090813

REACTIONS (5)
  - Thrombosis [None]
  - Injury [None]
  - Pain [None]
  - Transient ischaemic attack [None]
  - Pain [None]
